FAERS Safety Report 6056221-8 (Version None)
Quarter: 2009Q1

REPORT INFORMATION
  Report Type: 
  Country: None (occurrence: None)
  Receive Date: 20090123
  Receipt Date: 20090123
  Transmission Date: 20090719
  Serious: Yes (Other)
  Sender: FDA-Public Use
  Company Number: None

PATIENT
  Sex: Female
  Weight: 77.1115 kg

DRUGS (1)
  1. ZOVIRAX [Suspect]
     Indication: ORAL HERPES
     Dosage: ONE TABLET EVERY 4 HOURS PO
     Route: 048
     Dates: start: 20081231, end: 20081231

REACTIONS (1)
  - VOMITING [None]
